FAERS Safety Report 15991615 (Version 1)
Quarter: 2019Q1

REPORT INFORMATION
  Report Type: Spontaneous
  Country: US (occurrence: US)
  Receive Date: 20190221
  Receipt Date: 20190221
  Transmission Date: 20190418
  Serious: No
  Sender: FDA-Public Use
  Company Number: US-TEVA-2019-US-1013631

PATIENT
  Age: 69 Year
  Sex: Female

DRUGS (1)
  1. FLUVASTATIN SODIUM CAPSULE, 20MG [Suspect]
     Active Substance: FLUVASTATIN SODIUM

REACTIONS (1)
  - Gastrointestinal disorder [Unknown]
